FAERS Safety Report 5227083-3 (Version None)
Quarter: 2007Q1

REPORT INFORMATION
  Report Type: 
  Country: None (occurrence: None)
  Receive Date: 20070130
  Receipt Date: 20070116
  Transmission Date: 20070707
  Serious: Yes (Hospitalization)
  Sender: FDA-Public Use
  Company Number: OMPQ-NO-0601S-0013

PATIENT
  Age: 37 Year
  Sex: Male

DRUGS (1)
  1. OMNIPAQUE 140 [Suspect]
     Indication: BACK PAIN
     Dosage: 10 ML, SINGLE DOSE, I.T.
     Route: 038
     Dates: start: 20010731, end: 20010731

REACTIONS (12)
  - ARACHNOIDITIS [None]
  - CEREBRAL DISORDER [None]
  - CSF PROTEIN INCREASED [None]
  - DEMYELINATION [None]
  - GAIT DISTURBANCE [None]
  - HEADACHE [None]
  - LEUKOENCEPHALOMYELITIS [None]
  - MENINGITIS ASEPTIC [None]
  - NAUSEA [None]
  - PARAESTHESIA [None]
  - POST PROCEDURAL COMPLICATION [None]
  - VOMITING [None]
